FAERS Safety Report 7898125 (Version 23)
Quarter: 2017Q3

REPORT INFORMATION
  Report Type: Report from Study
  Country: CA (occurrence: CA)
  Receive Date: 20110413
  Receipt Date: 20170928
  Transmission Date: 20171128
  Serious: Yes (Hospitalization, Other)
  Sender: FDA-Public Use
  Company Number: PHHY2011CA28088

PATIENT
  Age: 36 Year
  Sex: Female

DRUGS (8)
  1. SANDOSTATIN LAR DEPOT [Suspect]
     Active Substance: OCTREOTIDE ACETATE
     Indication: ACROMEGALY
     Dosage: 20 MG, QMO (EVERY 4 WEEKS)
     Route: 030
     Dates: start: 20100823, end: 20101018
  2. FLUOXETINE [Concomitant]
     Active Substance: FLUOXETINE HYDROCHLORIDE
     Indication: PRODUCT USED FOR UNKNOWN INDICATION
     Dosage: 10 MG, QD
     Route: 065
  3. SANDOSTATIN LAR DEPOT [Suspect]
     Active Substance: OCTREOTIDE ACETATE
     Dosage: 10 MG, QMO (EVERY 4 WEEKS)
     Route: 030
     Dates: start: 20101115
  4. SANDOSTATIN [Suspect]
     Active Substance: OCTREOTIDE ACETATE
     Indication: ACROMEGALY
     Dosage: QD (ONCE A DAY FOR 5 DAYS)
     Route: 058
     Dates: start: 20100806, end: 20100812
  5. SANDOSTATIN LAR DEPOT [Suspect]
     Active Substance: OCTREOTIDE ACETATE
     Dosage: UNK
     Route: 065
     Dates: start: 20101018
  6. SANDOSTATIN LAR DEPOT [Suspect]
     Active Substance: OCTREOTIDE ACETATE
     Dosage: 10 MG, QMO
     Route: 030
  7. PROZAC [Concomitant]
     Active Substance: FLUOXETINE HYDROCHLORIDE
     Indication: PRODUCT USED FOR UNKNOWN INDICATION
     Route: 065
     Dates: end: 20140404
  8. PRANOL//DIOSMIN [Concomitant]
     Indication: PRODUCT USED FOR UNKNOWN INDICATION
     Dosage: 0.5 DF, QD
     Route: 065

REACTIONS (30)
  - Cystitis [Unknown]
  - Muscle spasms [Unknown]
  - Feeling abnormal [Unknown]
  - Anxiety [Unknown]
  - Stress [Unknown]
  - Back pain [Unknown]
  - Headache [Unknown]
  - Injection site bruising [Unknown]
  - Nausea [Recovering/Resolving]
  - Gastrooesophageal reflux disease [Not Recovered/Not Resolved]
  - Depression [Unknown]
  - Mass [Unknown]
  - Heart rate increased [Unknown]
  - Dizziness [Not Recovered/Not Resolved]
  - Constipation [Unknown]
  - Blood pressure decreased [Unknown]
  - Weight increased [Unknown]
  - Ovarian cyst [Not Recovered/Not Resolved]
  - Vomiting [Recovered/Resolved]
  - Cough [Unknown]
  - Ear pain [Unknown]
  - Blood pressure systolic decreased [Unknown]
  - Asthenia [Not Recovered/Not Resolved]
  - Cholelithiasis [Not Recovered/Not Resolved]
  - Abdominal migraine [Unknown]
  - Sleep disorder [Unknown]
  - Visual impairment [Unknown]
  - Migraine [Unknown]
  - Abdominal pain upper [Not Recovered/Not Resolved]
  - Abdominal pain [Unknown]

NARRATIVE: CASE EVENT DATE: 2013
